FAERS Safety Report 4486075-2 (Version None)
Quarter: 2004Q4

REPORT INFORMATION
  Report Type: 
  Country: None (occurrence: None)
  Receive Date: 20041021
  Receipt Date: 20041007
  Transmission Date: 20050328
  Serious: Yes (Other)
  Sender: FDA-Public Use
  Company Number: 2004RL000107

PATIENT
  Age: 79 Year
  Sex: Female

DRUGS (2)
  1. RHYTHMOL (PROPAFENONE HYDROCHLORIDE) [Suspect]
     Indication: ARRHYTHMIA
     Dosage: 300 MG; QD; PO
     Route: 048
     Dates: start: 20040401, end: 20040101
  2. LOSARTAN [Concomitant]

REACTIONS (4)
  - BLOOD GLUCOSE INCREASED [None]
  - CONFUSIONAL STATE [None]
  - DELIRIUM [None]
  - PSYCHOTIC DISORDER [None]
